FAERS Safety Report 5023267-8 (Version None)
Quarter: 2006Q2

REPORT INFORMATION
  Report Type: 
  Country: None (occurrence: None)
  Receive Date: 20060428
  Receipt Date: 20060119
  Transmission Date: 20061013
  Serious: No
  Sender: FDA-Public Use
  Company Number: 012098

PATIENT
  Age: 47 Year
  Sex: Male

DRUGS (5)
  1. PRIALT [Suspect]
     Indication: POST LAMINECTOMY SYNDROME
     Dosage: SEE IMAGE
     Route: 037
     Dates: start: 20051115, end: 20051201
  2. PRIALT [Suspect]
     Indication: POST LAMINECTOMY SYNDROME
     Dosage: SEE IMAGE
     Route: 037
     Dates: start: 20051201, end: 20060111
  3. FENTANYL [Concomitant]
  4. BUPIVACAINE [Concomitant]
  5. CLONIDINE [Concomitant]

REACTIONS (2)
  - CONFUSIONAL STATE [None]
  - PERIPHERAL COLDNESS [None]
